FAERS Safety Report 18628080 (Version 1)
Quarter: 2020Q4

REPORT INFORMATION
  Report Type: Spontaneous
  Country: JP (occurrence: JP)
  Receive Date: 20201217
  Receipt Date: 20201217
  Transmission Date: 20210114
  Serious: No
  Sender: FDA-Public Use
  Company Number: JP-ACACIA PHARMA LIMITED-2103120

PATIENT

DRUGS (2)
  1. BYFAVO [Suspect]
     Active Substance: REMIMAZOLAM BESYLATE
     Indication: PRODUCT USED FOR UNKNOWN INDICATION
     Route: 042
  2. SOLACET D [Concomitant]

REACTIONS (1)
  - Vascular access site occlusion [Unknown]
